FAERS Safety Report 21425648 (Version 1)
Quarter: 2022Q4

REPORT INFORMATION
  Report Type: Spontaneous
  Country: DE (occurrence: DE)
  Receive Date: 20221008
  Receipt Date: 20221008
  Transmission Date: 20230113
  Serious: Yes (Hospitalization)
  Sender: FDA-Public Use
  Company Number: DE-ADRED-07866-01

PATIENT
  Age: 80 Year
  Sex: Female
  Weight: 61 kg

DRUGS (11)
  1. ALLOPURINOL [Suspect]
     Active Substance: ALLOPURINOL
     Indication: Product used for unknown indication
     Dosage: 300 MILLIGRAM, ONCE A DAY(300 MG, 0.5-0-0-0, TABLETTEN)
     Route: 048
  2. CANDESARTAN [Suspect]
     Active Substance: CANDESARTAN
     Indication: Product used for unknown indication
     Dosage: 32 MILLIGRAM, ONCE A DAY(32 MG, 0-0-0.5-0, TABLETTEN)
     Route: 048
  3. CEFUROXIME [Suspect]
     Active Substance: CEFUROXIME
     Indication: Product used for unknown indication
     Dosage: UNK(NACH SCHEMA)
     Route: 065
  4. TORSEMIDE [Suspect]
     Active Substance: TORSEMIDE
     Indication: Product used for unknown indication
     Dosage: 20 MILLIGRAM, TWO TIMES A DAY(20 MG, 2-1-0-0, TABLETTEN)
     Route: 048
  5. CHLORTHALIDONE [Suspect]
     Active Substance: CHLORTHALIDONE
     Indication: Product used for unknown indication
     Dosage: 25 MILLIGRAM, ONCE A DAY(25 MG, 0.5-0-0-0, TABLETTEN)
     Route: 048
  6. PHENPROCOUMON [Suspect]
     Active Substance: PHENPROCOUMON
     Indication: Product used for unknown indication
     Dosage: 3 MILLIGRAM, ONCE A DAY(3 MG, 0.5-0-0-0, TABLETTEN)
     Route: 048
  7. INSULIN HUMAN [Suspect]
     Active Substance: INSULIN HUMAN
     Indication: Product used for unknown indication
     Dosage: UNK(1 IE, NACH BZ, FERTIGSPRITZEN)
     Route: 058
  8. CHOLECALCIFEROL [Concomitant]
     Active Substance: CHOLECALCIFEROL
     Indication: Product used for unknown indication
     Dosage: 1000 INTERNATIONAL UNIT, ONCE A DAY
     Route: 048
  9. FENTANYL [Concomitant]
     Active Substance: FENTANYL
     Indication: Product used for unknown indication
     Dosage: 0.025 MILLIGRAM/HOUR
     Route: 062
  10. BISOPROLOL [Concomitant]
     Active Substance: BISOPROLOL
     Indication: Product used for unknown indication
     Dosage: 5 MILLIGRAM, ONCE A DAY(5 MG, 0-0-1-0, TABLETTEN)
     Route: 048
  11. POLYETHYLENE GLYCOLS [Concomitant]
     Active Substance: POLYETHYLENE GLYCOLS
     Indication: Product used for unknown indication
     Dosage: 13.125 GRAM, ONCE A DAY(13.125 G, 1-0-0-0, PULVER)
     Route: 048

REACTIONS (4)
  - Wound infection [Unknown]
  - Impaired healing [Unknown]
  - Product monitoring error [Unknown]
  - Product prescribing error [Unknown]

NARRATIVE: CASE EVENT DATE: 20210515
